FAERS Safety Report 7647337-0 (Version None)
Quarter: 2011Q3

REPORT INFORMATION
  Report Type: 
  Country: None (occurrence: None)
  Receive Date: 20110801
  Receipt Date: 20110720
  Transmission Date: 20111222
  Serious: Yes (Hospitalization)
  Sender: FDA-Public Use
  Company Number: US-ROCHE-792164

PATIENT
  Sex: Female

DRUGS (1)
  1. XELODA [Suspect]
     Dosage: 2 WEEK ON/2 WEEK OFF.
     Route: 048
     Dates: start: 20110110

REACTIONS (1)
  - HOSPITALISATION [None]
